FAERS Safety Report 8506626-8 (Version None)
Quarter: 2012Q3

REPORT INFORMATION
  Report Type: 
  Country: None (occurrence: None)
  Receive Date: 20120712
  Receipt Date: 20120710
  Transmission Date: 20120928
  Serious: No
  Sender: FDA-Public Use
  Company Number: US-PFIZER INC-2012165656

PATIENT

DRUGS (2)
  1. CELEBREX [Suspect]
     Dosage: 200 MG/ DAY
  2. CELEBREX [Suspect]
     Dosage: ONCE/WEEK

REACTIONS (1)
  - ARTHRITIS [None]
